FAERS Safety Report 4783748-9 (Version None)
Quarter: 2005Q3

REPORT INFORMATION
  Report Type: 
  Country: None (occurrence: None)
  Receive Date: 20050927
  Receipt Date: 20050527
  Transmission Date: 20060218
  Serious: No
  Sender: FDA-Public Use
  Company Number: USA050599245

PATIENT
  Age: 7 Month
  Sex: Male
  Weight: 34 kg

DRUGS (2)
  1. STRATTERA [Suspect]
     Indication: ATTENTION DEFICIT/HYPERACTIVITY DISORDER
     Dosage: 40 MG DAY
     Dates: start: 20050407
  2. ADVAIR DISKUS 100/50 [Concomitant]

REACTIONS (4)
  - ANGER [None]
  - CONTUSION [None]
  - MOOD SWINGS [None]
  - WEIGHT DECREASED [None]
